FAERS Safety Report 9162035 (Version 1)
Quarter: 2013Q1

REPORT INFORMATION
  Report Type: Spontaneous
  Country: GB (occurrence: None)
  Receive Date: 20130222
  Receipt Date: 20130222
  Transmission Date: 20140127
  Serious: Yes (Hospitalization)
  Sender: FDA-Public Use
  Company Number: SYM-2013-00751

PATIENT
  Age: 88 Year
  Sex: Male

DRUGS (7)
  1. MESTINON [Suspect]
     Indication: MYASTHENIA GRAVIS
     Dates: start: 2011
  2. BISOPROLOL (BISOPROLOL)(BISOPROLOL) [Concomitant]
  3. ASPIRIN (ACETYLSALICYLIC ACID)(ACETYLSALICYLIC ACID) [Concomitant]
  4. LANSOPRAZOLE (LANSOPRAZOLE)(LANSOPRAZOLE) [Concomitant]
  5. MENTHOL (MENTHOL)(MENTHOL) [Concomitant]
  6. ALENDRONIC ACID (ALENDRONIC ACID) (ALENDRONIC ACID) [Concomitant]
  7. LACOSAMIDE (LACOSAMIDE) (LACOSAMIDE) [Concomitant]

REACTIONS (1)
  - Dysphagia [None]
